FAERS Safety Report 4525184-6 (Version None)
Quarter: 2004Q4

REPORT INFORMATION
  Report Type: 
  Country: None (occurrence: None)
  Receive Date: 20041213
  Receipt Date: 20030605
  Transmission Date: 20050328
  Serious: Yes (Hospitalization, Disabling, Other)
  Sender: FDA-Public Use
  Company Number: US-MERCK-0306USA00805

PATIENT
  Age: 66 Year
  Sex: Female
  Weight: 140 kg

DRUGS (33)
  1. VIOXX [Suspect]
     Indication: BACK PAIN
     Route: 048
     Dates: start: 19990617
  2. VIOXX [Suspect]
     Route: 048
     Dates: start: 20010222, end: 20010418
  3. VIOXX [Suspect]
     Route: 065
     Dates: start: 20011101
  4. VIOXX [Suspect]
     Route: 048
     Dates: start: 20020124, end: 20020225
  5. VIOXX [Suspect]
     Route: 048
     Dates: start: 20031103
  6. VIOXX [Suspect]
     Route: 048
     Dates: start: 20020323, end: 20020401
  7. VIOXX [Suspect]
     Indication: ARTHRALGIA
     Route: 048
     Dates: start: 19990617
  8. VIOXX [Suspect]
     Route: 048
     Dates: start: 20010222, end: 20010418
  9. VIOXX [Suspect]
     Route: 065
     Dates: start: 20011101
  10. VIOXX [Suspect]
     Route: 048
     Dates: start: 20020124, end: 20020225
  11. VIOXX [Suspect]
     Route: 048
     Dates: start: 20031103
  12. VIOXX [Suspect]
     Route: 048
     Dates: start: 20020323, end: 20020401
  13. LOTREL [Concomitant]
     Route: 048
     Dates: start: 19990101, end: 20020425
  14. LOTREL [Concomitant]
     Route: 048
     Dates: start: 20030601
  15. LOTREL [Concomitant]
     Route: 048
     Dates: start: 19990617
  16. LASIX [Concomitant]
     Route: 065
     Dates: start: 19990101
  17. NOLVADEX [Concomitant]
     Route: 065
     Dates: start: 19950101, end: 20000701
  18. BENICAR [Concomitant]
     Route: 048
     Dates: start: 20020101, end: 20030601
  19. LIPITOR [Concomitant]
     Indication: BLOOD CHOLESTEROL INCREASED
     Route: 048
  20. LIPITOR [Concomitant]
     Indication: DYSLIPIDAEMIA
     Route: 048
  21. TOPROL-XL [Concomitant]
     Route: 048
     Dates: start: 20030601
  22. SINGULAIR [Concomitant]
     Route: 048
     Dates: start: 19990101
  23. PREVACID [Concomitant]
     Route: 065
     Dates: start: 20000201
  24. PRILOSEC [Concomitant]
     Route: 048
     Dates: end: 20010418
  25. PROVENTIL [Concomitant]
     Route: 065
  26. EVISTA [Concomitant]
     Route: 048
  27. CLARITIN [Concomitant]
     Route: 048
  28. VASERETIC [Concomitant]
     Route: 048
  29. NORVASC [Concomitant]
     Route: 048
  30. ZOLOFT [Concomitant]
     Route: 048
  31. ZOCOR [Concomitant]
     Route: 048
  32. LESCOL [Concomitant]
     Indication: BLOOD CHOLESTEROL INCREASED
     Route: 048
     Dates: start: 19990722
  33. COREG [Concomitant]
     Route: 048

REACTIONS (43)
  - ADVERSE EVENT [None]
  - ARTHROPATHY [None]
  - ASTHMA [None]
  - BLINDNESS UNILATERAL [None]
  - BLOOD CREATININE INCREASED [None]
  - BLOOD UREA INCREASED [None]
  - BRONCHOSPASM [None]
  - BURSITIS [None]
  - CANDIDIASIS [None]
  - CARDIAC FAILURE CONGESTIVE [None]
  - COUGH [None]
  - DIZZINESS [None]
  - DRUG INEFFECTIVE [None]
  - DYSPEPSIA [None]
  - FACE OEDEMA [None]
  - FALL [None]
  - GALLBLADDER DISORDER [None]
  - GASTROOESOPHAGEAL REFLUX DISEASE [None]
  - HEAD DISCOMFORT [None]
  - HEADACHE [None]
  - HOT FLUSH [None]
  - HYPERTENSION [None]
  - KNEE ARTHROPLASTY [None]
  - MICROCYTIC ANAEMIA [None]
  - OEDEMA PERIPHERAL [None]
  - PAIN [None]
  - PALPITATIONS [None]
  - PNEUMONIA [None]
  - PNEUMONIA HAEMOPHILUS [None]
  - POLYTRAUMATISM [None]
  - POSTMENOPAUSAL HAEMORRHAGE [None]
  - RASH GENERALISED [None]
  - RENAL FAILURE [None]
  - RENAL FAILURE CHRONIC [None]
  - RHINITIS ALLERGIC [None]
  - SINUS DISORDER [None]
  - SKIN LESION [None]
  - STOMACH DISCOMFORT [None]
  - TACHYCARDIA [None]
  - TINEA INFECTION [None]
  - UTERINE LEIOMYOMA [None]
  - UTERINE POLYP [None]
  - WRIST FRACTURE [None]
